FAERS Safety Report 23334190 (Version 1)
Quarter: 2023Q4

REPORT INFORMATION
  Report Type: Spontaneous
  Country: US (occurrence: US)
  Receive Date: 20231223
  Receipt Date: 20231223
  Transmission Date: 20240110
  Serious: No
  Sender: FDA-Public Use
  Company Number: US-GSK-US2023AMR176015

PATIENT
  Sex: Female

DRUGS (1)
  1. WELLBUTRIN [Suspect]
     Active Substance: BUPROPION HYDROCHLORIDE
     Indication: Rhabdomyosarcoma
     Dosage: UNK

REACTIONS (3)
  - Drug hypersensitivity [Unknown]
  - Anger [Unknown]
  - Product use in unapproved indication [Unknown]
